FAERS Safety Report 9596884 (Version 1)
Quarter: 2013Q4

REPORT INFORMATION
  Report Type: Spontaneous
  Country: FR (occurrence: FR)
  Receive Date: 20131004
  Receipt Date: 20131004
  Transmission Date: 20140711
  Serious: Yes (Death, Congenital Anomaly)
  Sender: FDA-Public Use
  Company Number: FR-ASTRAZENECA-2013SE73118

PATIENT
  Age: 0 Week
  Sex: 0

DRUGS (5)
  1. CRESTOR [Suspect]
     Route: 064
     Dates: end: 20130620
  2. METFORMINE [Suspect]
     Indication: TYPE 2 DIABETES MELLITUS
     Route: 064
     Dates: end: 20130620
  3. VICTOZA [Suspect]
     Indication: TYPE 2 DIABETES MELLITUS
     Route: 064
     Dates: start: 20110707, end: 20130620
  4. INSULATARD [Concomitant]
     Indication: TYPE 2 DIABETES MELLITUS
  5. LEVOTHYROX [Concomitant]

REACTIONS (2)
  - Foetal malformation [Fatal]
  - Congenital central nervous system anomaly [Fatal]
